FAERS Safety Report 17513389 (Version 1)
Quarter: 2020Q1

REPORT INFORMATION
  Report Type: Report from Study
  Country: US (occurrence: US)
  Receive Date: 20200307
  Receipt Date: 20200307
  Transmission Date: 20200409
  Serious: Yes (Other)
  Sender: FDA-Public Use
  Company Number: US-EMD SERONO-9149467

PATIENT
  Age: 71 Year
  Sex: Female

DRUGS (1)
  1. REBIF [Suspect]
     Active Substance: INTERFERON BETA-1A
     Indication: MULTIPLE SCLEROSIS
     Route: 058
     Dates: start: 20060301

REACTIONS (6)
  - Loss of consciousness [Recovered/Resolved]
  - Needle fatigue [Unknown]
  - Treatment noncompliance [Unknown]
  - Carotid artery stenosis [Unknown]
  - Injection site erythema [Unknown]
  - Memory impairment [Unknown]

NARRATIVE: CASE EVENT DATE: 201910
